FAERS Safety Report 5086004-7 (Version None)
Quarter: 2006Q3

REPORT INFORMATION
  Report Type: 
  Country: None (occurrence: None)
  Receive Date: 20060817
  Receipt Date: 20060804
  Transmission Date: 20061208
  Serious: Yes (Life-Threatening)
  Sender: FDA-Public Use
  Company Number: S06-FRA-03313-01

PATIENT
  Age: 55 Year
  Sex: Female
  Weight: 124 kg

DRUGS (7)
  1. SEROPRAM (CITALOPRAM HYDROBROMIDE) [Suspect]
     Indication: DYSTHYMIC DISORDER
  2. BUFLOMEDIL [Suspect]
     Indication: SKIN ULCER
  3. RABEPRAZOLE SODIUM [Suspect]
  4. ALTEIS (OLMESARTAN MEDOXOMIL) [Suspect]
     Indication: ESSENTIAL HYPERTENSION
     Dosage: 10 MG QD PO
     Route: 048
  5. PLAVIX [Suspect]
     Dosage: 75 MG QD PO
     Route: 048
  6. DAFALGAN (PARACETAMOL) [Suspect]
     Indication: FIBROMYALGIA
  7. DAFALGAN (PARACETAMOL) [Suspect]
     Indication: MUSCULOSKELETAL PAIN

REACTIONS (13)
  - ABDOMINAL PAIN [None]
  - DEPRESSED LEVEL OF CONSCIOUSNESS [None]
  - GASTRIC ULCER PERFORATION [None]
  - HYPERKALAEMIA [None]
  - HYPOTENSION [None]
  - INFECTED SKIN ULCER [None]
  - INFLAMMATION [None]
  - PERITONITIS [None]
  - PNEUMOPERITONEUM [None]
  - RENAL FAILURE [None]
  - SEPSIS [None]
  - TACHYCARDIA [None]
  - WOUND SECRETION [None]
